FAERS Safety Report 23824352 (Version 1)
Quarter: 2024Q2

REPORT INFORMATION
  Report Type: Spontaneous
  Country: US (occurrence: US)
  Receive Date: 20240507
  Receipt Date: 20240507
  Transmission Date: 20240716
  Serious: No
  Sender: FDA-Public Use
  Company Number: US-ELI_LILLY_AND_COMPANY-US202405002232

PATIENT
  Age: 36 Year
  Sex: Female

DRUGS (4)
  1. VERZENIO [Suspect]
     Active Substance: ABEMACICLIB
     Indication: Breast cancer
     Dosage: 150 MG, UNKNOWN
     Route: 065
  2. VERZENIO [Suspect]
     Active Substance: ABEMACICLIB
     Dosage: 100 MG, UNKNOWN
     Route: 065
  3. EXEMESTANE [Concomitant]
     Active Substance: EXEMESTANE
     Indication: Breast cancer
  4. TAMOXIFEN [Concomitant]
     Active Substance: TAMOXIFEN
     Indication: Breast cancer

REACTIONS (7)
  - Anxiety [Recovered/Resolved]
  - Palpitations [Recovered/Resolved]
  - Escherichia infection [Recovered/Resolved]
  - Salmonellosis [Recovered/Resolved]
  - Diarrhoea [Recovered/Resolved]
  - Cellulitis [Recovered/Resolved]
  - Abscess [Recovered/Resolved]
